FAERS Safety Report 5381517-2 (Version None)
Quarter: 2007Q2

REPORT INFORMATION
  Report Type: 
  Country: None (occurrence: None)
  Receive Date: 20070629
  Receipt Date: 20070306
  Transmission Date: 20071010
  Serious: Yes (Death, Other)
  Sender: FDA-Public Use
  Company Number: 2006153823

PATIENT
  Age: 51 Year
  Sex: Male
  Weight: 68 kg

DRUGS (4)
  1. ZOLOFT [Suspect]
     Indication: MAJOR DEPRESSION
     Dosage: 25 MG (25 MG, 1 IN 1 D), ORAL
     Route: 048
     Dates: start: 20061209
  2. ALBUTEROL [Concomitant]
  3. ZANTAC 150 [Concomitant]
  4. AMBIEN (ZOLPIDEMM TARTRATE) [Concomitant]

REACTIONS (2)
  - COMPLETED SUICIDE [None]
  - MALAISE [None]
